FAERS Safety Report 6881783-8 (Version None)
Quarter: 2010Q3

REPORT INFORMATION
  Report Type: 
  Country: None (occurrence: None)
  Receive Date: 20100729
  Receipt Date: 20100719
  Transmission Date: 20110219
  Serious: Yes (Hospitalization)
  Sender: FDA-Public Use
  Company Number: FR-PFIZER INC-2010085851

PATIENT
  Age: 86 Year
  Sex: Female

DRUGS (12)
  1. LYRICA [Suspect]
     Indication: DEMENTIA ALZHEIMER'S TYPE
     Dosage: 75 MG, 1X/DAY
     Route: 048
  2. RISPERDAL [Suspect]
     Indication: DEMENTIA ALZHEIMER'S TYPE
     Dosage: UNK
  3. ALDALIX [Concomitant]
  4. ALPRAZOLAM [Concomitant]
  5. ESCITALOPRAM [Concomitant]
  6. PLAVIX [Concomitant]
  7. DIFFU K [Concomitant]
  8. BUFLOMEDIL [Concomitant]
  9. EXELON [Concomitant]
  10. VERAPAMIL [Concomitant]
  11. LEVOTHYROXINE SODIUM [Concomitant]
  12. FUROSEMIDE [Concomitant]

REACTIONS (1)
  - GASTROINTESTINAL OBSTRUCTION [None]
